FAERS Safety Report 13303670 (Version 1)
Quarter: 2017Q1

REPORT INFORMATION
  Report Type: Spontaneous
  Country: IT (occurrence: IT)
  Receive Date: 20170307
  Receipt Date: 20170307
  Transmission Date: 20170428
  Serious: Yes (Other)
  Sender: FDA-Public Use
  Company Number: PHHY2017IT031702

PATIENT
  Age: 82 Year
  Sex: Female

DRUGS (1)
  1. PARICALCITOL. [Suspect]
     Active Substance: PARICALCITOL
     Indication: HYPERPARATHYROIDISM SECONDARY
     Dosage: 1 UG, QD
     Route: 065
     Dates: start: 201012

REACTIONS (2)
  - Blood calcium increased [Recovered/Resolved]
  - Renal impairment [Recovered/Resolved]
